FAERS Safety Report 23942298 (Version 2)
Quarter: 2024Q2

REPORT INFORMATION
  Report Type: Spontaneous
  Country: CA (occurrence: CA)
  Receive Date: 20240605
  Receipt Date: 20240607
  Transmission Date: 20240716
  Serious: Yes (Other)
  Sender: FDA-Public Use
  Company Number: CA-JNJFOC-20240586233

PATIENT
  Age: 58 Year
  Sex: Female
  Weight: 68 kg

DRUGS (38)
  1. REMICADE [Suspect]
     Active Substance: INFLIXIMAB
     Indication: Crohn^s disease
     Route: 041
  2. REMICADE [Suspect]
     Active Substance: INFLIXIMAB
     Route: 041
  3. REMICADE [Suspect]
     Active Substance: INFLIXIMAB
     Route: 041
  4. REMICADE [Suspect]
     Active Substance: INFLIXIMAB
     Route: 041
  5. REMICADE [Suspect]
     Active Substance: INFLIXIMAB
     Route: 041
  6. REMICADE [Suspect]
     Active Substance: INFLIXIMAB
     Route: 041
  7. REMICADE [Suspect]
     Active Substance: INFLIXIMAB
     Route: 041
  8. REMICADE [Suspect]
     Active Substance: INFLIXIMAB
     Route: 041
  9. REMICADE [Suspect]
     Active Substance: INFLIXIMAB
     Route: 041
  10. REMICADE [Suspect]
     Active Substance: INFLIXIMAB
     Route: 041
  11. REMICADE [Suspect]
     Active Substance: INFLIXIMAB
     Route: 041
  12. REMICADE [Suspect]
     Active Substance: INFLIXIMAB
     Route: 041
  13. REMICADE [Suspect]
     Active Substance: INFLIXIMAB
     Route: 041
  14. REMICADE [Suspect]
     Active Substance: INFLIXIMAB
     Route: 041
  15. REMICADE [Suspect]
     Active Substance: INFLIXIMAB
     Route: 041
  16. REMICADE [Suspect]
     Active Substance: INFLIXIMAB
     Route: 041
  17. REMICADE [Suspect]
     Active Substance: INFLIXIMAB
     Route: 041
  18. REMICADE [Suspect]
     Active Substance: INFLIXIMAB
     Route: 041
  19. REMICADE [Suspect]
     Active Substance: INFLIXIMAB
     Route: 041
  20. REMICADE [Suspect]
     Active Substance: INFLIXIMAB
     Route: 041
  21. REMICADE [Suspect]
     Active Substance: INFLIXIMAB
     Route: 041
  22. REMICADE [Suspect]
     Active Substance: INFLIXIMAB
     Route: 041
  23. REMICADE [Suspect]
     Active Substance: INFLIXIMAB
     Route: 041
  24. REMICADE [Suspect]
     Active Substance: INFLIXIMAB
     Route: 041
  25. REMICADE [Suspect]
     Active Substance: INFLIXIMAB
     Route: 041
  26. REMICADE [Suspect]
     Active Substance: INFLIXIMAB
     Route: 041
  27. REMICADE [Suspect]
     Active Substance: INFLIXIMAB
     Route: 041
  28. REMICADE [Suspect]
     Active Substance: INFLIXIMAB
     Route: 041
  29. REMICADE [Suspect]
     Active Substance: INFLIXIMAB
     Route: 041
  30. REMICADE [Suspect]
     Active Substance: INFLIXIMAB
     Route: 041
  31. REMICADE [Suspect]
     Active Substance: INFLIXIMAB
     Route: 041
  32. REMICADE [Suspect]
     Active Substance: INFLIXIMAB
     Route: 041
  33. REMICADE [Suspect]
     Active Substance: INFLIXIMAB
     Route: 041
  34. REMICADE [Suspect]
     Active Substance: INFLIXIMAB
     Route: 041
  35. REMICADE [Suspect]
     Active Substance: INFLIXIMAB
     Route: 041
  36. REMICADE [Suspect]
     Active Substance: INFLIXIMAB
     Route: 041
  37. XARELTO [Suspect]
     Active Substance: RIVAROXABAN
     Indication: Atrial fibrillation
     Route: 065
  38. MERCAPTOPURINE [Concomitant]
     Active Substance: MERCAPTOPURINE

REACTIONS (41)
  - Atrial fibrillation [Unknown]
  - Anal fissure [Unknown]
  - Aphthous ulcer [Unknown]
  - Gastrooesophageal reflux disease [Unknown]
  - Dysphagia [Unknown]
  - Gastrointestinal disorder [Unknown]
  - Inflammation [Unknown]
  - Muscular weakness [Unknown]
  - Oropharyngeal pain [Unknown]
  - Pancreatic disorder [Unknown]
  - Tendonitis [Unknown]
  - Fistula [Unknown]
  - Bone pain [Unknown]
  - Decreased appetite [Unknown]
  - Weight increased [Unknown]
  - Infusion site pain [Unknown]
  - Vomiting [Unknown]
  - Anal abscess [Unknown]
  - Rectal abscess [Unknown]
  - Abscess limb [Unknown]
  - Abdominal discomfort [Unknown]
  - Dyspepsia [Unknown]
  - Anaemia [Unknown]
  - Arthralgia [Unknown]
  - Bronchitis [Unknown]
  - COVID-19 [Unknown]
  - Constipation [Unknown]
  - Fatigue [Unknown]
  - Condition aggravated [Unknown]
  - Abscess [Unknown]
  - Myalgia [Unknown]
  - Nausea [Unknown]
  - Pain [Unknown]
  - Subcutaneous abscess [Unknown]
  - Drug level below therapeutic [Unknown]
  - Inappropriate schedule of product administration [Unknown]
  - Incorrect dose administered [Unknown]
  - Intentional product use issue [Unknown]
  - Off label use [Unknown]
  - Therapeutic response shortened [Unknown]
  - Drug ineffective [Unknown]
